FAERS Safety Report 23314160 (Version 3)
Quarter: 2024Q1

REPORT INFORMATION
  Report Type: Spontaneous
  Country: US (occurrence: US)
  Receive Date: 20231219
  Receipt Date: 20240227
  Transmission Date: 20240410
  Serious: Yes (Other)
  Sender: FDA-Public Use
  Company Number: US-PFIZER INC-PV202300203063

PATIENT
  Age: 54 Year
  Sex: Female

DRUGS (1)
  1. ZIRABEV [Suspect]
     Active Substance: BEVACIZUMAB-BVZR
     Indication: Renal cancer metastatic
     Dosage: UNK

REACTIONS (4)
  - Gallbladder operation [Unknown]
  - Hiatus hernia [Unknown]
  - Neoplasm progression [Unknown]
  - Hepatic steatosis [Unknown]
